FAERS Safety Report 9194867 (Version 1)
Quarter: 2013Q1

REPORT INFORMATION
  Report Type: Spontaneous
  Country: US (occurrence: US)
  Receive Date: 20130328
  Receipt Date: 20130328
  Transmission Date: 20140127
  Serious: No
  Sender: FDA-Public Use
  Company Number: US-ALLERGAN-1211211US

PATIENT
  Sex: Female

DRUGS (2)
  1. LATISSE 0.03% [Suspect]
     Indication: GROWTH OF EYELASHES
     Dosage: UNK, QHS
     Route: 061
     Dates: end: 201208
  2. REFRESH TEARS [Concomitant]
     Indication: DRY EYE
     Dosage: 2 GTT, QD
     Route: 047

REACTIONS (3)
  - Wrong technique in drug usage process [Unknown]
  - Scleral discolouration [Not Recovered/Not Resolved]
  - Ocular icterus [Not Recovered/Not Resolved]
